FAERS Safety Report 19774149 (Version 4)
Quarter: 2021Q4

REPORT INFORMATION
  Report Type: Report from Study
  Country: FR (occurrence: FR)
  Receive Date: 20210831
  Receipt Date: 20211123
  Transmission Date: 20220303
  Serious: Yes (Death, Life-Threatening, Hospitalization, Other)
  Sender: FDA-Public Use
  Company Number: FR-GILEAD-2021-0545632

PATIENT
  Age: 74 Year
  Sex: Male
  Weight: 55 kg

DRUGS (3)
  1. AXICABTAGENE CILOLEUCEL [Suspect]
     Active Substance: AXICABTAGENE CILOLEUCEL
     Indication: B-cell lymphoma
     Dosage: UNK
     Route: 042
     Dates: start: 20210816, end: 20210816
  2. FLUDARABINE [Concomitant]
     Active Substance: FLUDARABINE PHOSPHATE
     Indication: Bone marrow conditioning regimen
     Dosage: 48.75 MG (TOTAL)
     Dates: start: 20210811, end: 20210813
  3. CYCLOPHOSPHAMIDE [Concomitant]
     Active Substance: CYCLOPHOSPHAMIDE
     Indication: Bone marrow conditioning regimen
     Dosage: 820 MG (TOTAL)
     Dates: start: 20210811, end: 20210813

REACTIONS (4)
  - Systemic mycosis [Fatal]
  - Immune effector cell-associated neurotoxicity syndrome [Recovered/Resolved with Sequelae]
  - Cytokine release syndrome [Recovered/Resolved]
  - Pulmonary oedema [Not Recovered/Not Resolved]

NARRATIVE: CASE EVENT DATE: 20210821
